FAERS Safety Report 25551964 (Version 1)
Quarter: 2025Q3

REPORT INFORMATION
  Report Type: Spontaneous
  Country: EU (occurrence: None)
  Receive Date: 20250714
  Receipt Date: 20250714
  Transmission Date: 20251020
  Serious: Yes (Hospitalization, Other)
  Sender: MAIA PHARMACEUTICALS
  Company Number: EU-MAIA Pharmaceuticals, Inc.-MAI202507-000093

PATIENT
  Age: 33 Year
  Sex: Female

DRUGS (1)
  1. LEVOTHYROXINE SODIUM [Suspect]
     Active Substance: LEVOTHYROXINE SODIUM
     Indication: Product used for unknown indication
     Route: 048

REACTIONS (5)
  - Suicide attempt [Unknown]
  - Pneumonia aspiration [Unknown]
  - Toxicity to various agents [Unknown]
  - Coma [Recovering/Resolving]
  - Intentional overdose [Unknown]
